FAERS Safety Report 23776912 (Version 2)
Quarter: 2024Q2

REPORT INFORMATION
  Report Type: Spontaneous
  Country: US (occurrence: US)
  Receive Date: 20240424
  Receipt Date: 20240426
  Transmission Date: 20240716
  Serious: No
  Sender: FDA-Public Use
  Company Number: US-AMX-008048

PATIENT
  Sex: Male

DRUGS (3)
  1. RELYVRIO [Suspect]
     Active Substance: SODIUM PHENYLBUTYRATE\TAURURSODIOL
     Indication: Amyotrophic lateral sclerosis
     Dosage: 1 SACHET ONCE DAILY FOR 3WKS, THEN 1 SACHET TWICE DAILY.
     Route: 048
  2. RADICAVA [Concomitant]
     Active Substance: EDARAVONE
     Indication: Product used for unknown indication
     Route: 065
  3. RILUZOLE [Concomitant]
     Active Substance: RILUZOLE
     Indication: Product used for unknown indication
     Route: 065

REACTIONS (3)
  - Speech disorder [Unknown]
  - Muscle contractions involuntary [Unknown]
  - Muscular weakness [Unknown]
